FAERS Safety Report 5044834-1 (Version None)
Quarter: 2006Q3

REPORT INFORMATION
  Report Type: 
  Country: None (occurrence: None)
  Receive Date: 20060707
  Receipt Date: 20060124
  Transmission Date: 20061208
  Serious: Yes (Hospitalization)
  Sender: FDA-Public Use
  Company Number: 2006UW01340

PATIENT
  Age: 61 Year
  Sex: Female
  Weight: 79.5 kg

DRUGS (7)
  1. ARIMIDEX [Suspect]
     Indication: BREAST CANCER
     Route: 048
  2. SINGULAIR [Concomitant]
  3. FOLIC ACID [Concomitant]
  4. ADVAIR DISKUS 100/50 [Concomitant]
     Dosage: 250/50
  5. BENTYL [Concomitant]
     Indication: STOMACH DISCOMFORT
  6. CARAFATE [Concomitant]
  7. ZYRTEC [Concomitant]
     Indication: MULTIPLE ALLERGIES

REACTIONS (7)
  - ARTHRALGIA [None]
  - ASTHENIA [None]
  - ESCHERICHIA INFECTION [None]
  - FLANK PAIN [None]
  - STRESS [None]
  - URINARY TRACT INFECTION [None]
  - VIRAL INFECTION [None]
